FAERS Safety Report 5136728-8 (Version None)
Quarter: 2006Q4

REPORT INFORMATION
  Report Type: 
  Country: None (occurrence: None)
  Receive Date: 20061023
  Receipt Date: 20061005
  Transmission Date: 20070319
  Serious: Yes (Other)
  Sender: FDA-Public Use
  Company Number: PAR_0879_2006

PATIENT
  Age: 72 Year
  Sex: Female

DRUGS (1)
  1. RANITIDINE HYDROCHLORIDE [Suspect]
     Dosage: DF

REACTIONS (3)
  - BLEPHAROSPASM [None]
  - DYSKINESIA [None]
  - MEIGE'S SYNDROME [None]
